FAERS Safety Report 6857131-6 (Version None)
Quarter: 2010Q3

REPORT INFORMATION
  Report Type: 
  Country: None (occurrence: None)
  Receive Date: 20100719
  Receipt Date: 20100706
  Transmission Date: 20110219
  Serious: Yes (Other)
  Sender: FDA-Public Use
  Company Number: B0665808A

PATIENT
  Sex: Female
  Weight: 55 kg

DRUGS (28)
  1. LAMICTAL [Suspect]
     Dosage: 75MG TWICE PER DAY
     Dates: start: 19930513
  2. TRILEPTAL [Concomitant]
     Dosage: 3300MG PER DAY
     Dates: start: 19960801, end: 20010901
  3. RIVOTRIL [Concomitant]
  4. VITAMINERAL [Concomitant]
  5. B VITAMIN [Concomitant]
  6. TRIPHASIL-21 [Concomitant]
  7. ROHYPNOL [Concomitant]
     Indication: SLEEP DISORDER
  8. UNKNOWN DRUG [Concomitant]
     Dates: start: 19910701
  9. NOZINAN [Concomitant]
     Indication: SLEEP DISORDER
  10. UNKNOWN DRUG [Concomitant]
     Indication: ANXIETY
  11. FENEMAL [Concomitant]
     Dates: start: 19900101
  12. EPINAT [Concomitant]
  13. BRICANYL [Concomitant]
  14. RHINOCORT [Concomitant]
  15. SEREVENT [Concomitant]
  16. PAROXETINE HCL [Concomitant]
     Route: 047
     Dates: start: 19960801
  17. VALPROATE SODIUM [Concomitant]
     Dosage: 300MG PER DAY
     Dates: start: 19960101
  18. THYROXIN SODIUM [Concomitant]
  19. ZYRTEC [Concomitant]
  20. IDO-E [Concomitant]
  21. VITAMINS [Concomitant]
  22. PULMICORT [Concomitant]
  23. LIVOSTIN [Concomitant]
     Route: 047
  24. VIOXX [Concomitant]
     Dosage: 12.5MG PER DAY
  25. RHINOCORT [Concomitant]
  26. APYDAN [Concomitant]
     Dosage: 900MG TWICE PER DAY
  27. VIVAL [Concomitant]
     Dosage: 5MG TWICE PER DAY
  28. TEGRETOL [Concomitant]
     Dates: start: 19910101

REACTIONS (18)
  - ALOPECIA [None]
  - ASTHMA [None]
  - BACK PAIN [None]
  - CONSTIPATION [None]
  - DIPLOPIA [None]
  - DIZZINESS [None]
  - EAR PRURITUS [None]
  - FOOD ALLERGY [None]
  - GENERALISED OEDEMA [None]
  - HEADACHE [None]
  - HEPATIC ENZYME INCREASED [None]
  - MYALGIA [None]
  - NAUSEA [None]
  - OEDEMA PERIPHERAL [None]
  - PRURITUS [None]
  - RASH [None]
  - SLEEP DISORDER [None]
  - TOOTH DISORDER [None]
